FAERS Safety Report 20844732 (Version 3)
Quarter: 2022Q2

REPORT INFORMATION
  Report Type: Spontaneous
  Country: US (occurrence: US)
  Receive Date: 20220518
  Receipt Date: 20220609
  Transmission Date: 20220721
  Serious: Yes (Other)
  Sender: FDA-Public Use
  Company Number: US-PFIZER INC-202200671210

PATIENT
  Age: 73 Year
  Sex: Female
  Weight: 68.934 kg

DRUGS (18)
  1. IBRANCE [Suspect]
     Active Substance: PALBOCICLIB
     Indication: Endometrial ablation
     Dosage: 75 MG, CYCLIC
     Route: 048
  2. IBRANCE [Suspect]
     Active Substance: PALBOCICLIB
     Indication: Breast cancer
  3. DICLOXACILLIN SODIUM [Suspect]
     Active Substance: DICLOXACILLIN SODIUM
     Dosage: UNK
     Dates: start: 20210923, end: 202111
  4. AMLODIPINE [Concomitant]
     Active Substance: AMLODIPINE BESYLATE
     Dosage: 2.5 MG, 1X/DAY
     Route: 048
  5. ATORVASTATIN [Concomitant]
     Active Substance: ATORVASTATIN
     Dosage: 40 MG, 1X/DAY
     Route: 048
  6. CARVEDILOL [Concomitant]
     Active Substance: CARVEDILOL
     Dosage: UNK
  7. ELIQUIS [Concomitant]
     Active Substance: APIXABAN
     Dosage: 5 MG, 2X/DAY
     Route: 048
  8. FAMOTIDINE [Concomitant]
     Active Substance: FAMOTIDINE
     Dosage: 20 MG, AS NEEDED
     Route: 048
  9. GABAPENTIN [Concomitant]
     Active Substance: GABAPENTIN
     Dosage: 100 MG
  10. ACETAMINOPHEN\HYDROCODONE [Concomitant]
     Active Substance: ACETAMINOPHEN\HYDROCODONE
     Dosage: 1 DF, AS NEEDED
     Route: 048
  11. LETROZOLE [Concomitant]
     Active Substance: LETROZOLE
     Dosage: 1 DF, 1X/DAY
     Route: 048
  12. LEVOCETIRIZINE [Concomitant]
     Active Substance: LEVOCETIRIZINE
     Dosage: 5 MG, 1X/DAY (IN EVENING)
     Route: 048
  13. LIDOCAINE [Concomitant]
     Active Substance: LIDOCAINE
     Dosage: 1 DF
     Route: 061
  14. MAGNESIUM OXIDE [Concomitant]
     Active Substance: MAGNESIUM OXIDE
     Dosage: 400 MG, AS NEEDED
     Route: 048
  15. METOPROLOL TARTRATE [Concomitant]
     Active Substance: METOPROLOL TARTRATE
     Dosage: 50 MG, 2X/DAY
     Route: 048
  16. ONDANSETRON HCL [Concomitant]
     Active Substance: ONDANSETRON HYDROCHLORIDE
     Dosage: 8 MG (EVERY 8 HOURS BY ORAL ROUTE AS NEEDED FOR 30DAYS)
     Route: 048
  17. PROCHLORPERAZINE MALEATE [Concomitant]
     Active Substance: PROCHLORPERAZINE MALEATE
     Dosage: 1 DF, AS NEEDED
     Route: 048
  18. PROPAFENONE [Concomitant]
     Active Substance: PROPAFENONE
     Dosage: 300 MG, AS NEEDED
     Route: 048

REACTIONS (8)
  - Neutropenia [Unknown]
  - Atrial fibrillation [Unknown]
  - Full blood count abnormal [Unknown]
  - Essential hypertension [Unknown]
  - Gastrooesophageal reflux disease [Unknown]
  - Cholelithiasis [Unknown]
  - Malabsorption [Unknown]
  - Anaemia [Unknown]

NARRATIVE: CASE EVENT DATE: 20211123
